FAERS Safety Report 16199687 (Version 1)
Quarter: 2019Q2

REPORT INFORMATION
  Report Type: Spontaneous
  Country: FR (occurrence: FR)
  Receive Date: 20190415
  Receipt Date: 20190415
  Transmission Date: 20190711
  Serious: Yes (Other)
  Sender: FDA-Public Use
  Company Number: FR-009507513-1904FRA003545

PATIENT
  Age: 74 Year
  Sex: Female

DRUGS (2)
  1. MAVYRET [Interacting]
     Active Substance: GLECAPREVIR\PIBRENTASVIR
     Indication: HEPATITIS C
     Dosage: UNK
     Route: 048
     Dates: start: 201903
  2. LOSARTAN POTASSIUM. [Suspect]
     Active Substance: LOSARTAN POTASSIUM
     Indication: PRODUCT USED FOR UNKNOWN INDICATION
     Dosage: DOSE DECREASED
     Route: 065

REACTIONS (2)
  - Potentiating drug interaction [Unknown]
  - Syncope [Unknown]

NARRATIVE: CASE EVENT DATE: 201903
